FAERS Safety Report 6123158-5 (Version None)
Quarter: 2009Q1

REPORT INFORMATION
  Report Type: 
  Country: None (occurrence: None)
  Receive Date: 20090318
  Receipt Date: 20090314
  Transmission Date: 20090719
  Serious: Yes (Other)
  Sender: FDA-Public Use
  Company Number: CN-JNJFOC-20090303731

PATIENT
  Age: 30 Year
  Sex: Male

DRUGS (1)
  1. EXTRA STRENGTH TYLENOL [Suspect]
     Indication: DRUG USE FOR UNKNOWN INDICATION

REACTIONS (4)
  - ASTHENIA [None]
  - DIZZINESS [None]
  - INTENTIONAL OVERDOSE [None]
  - VOMITING [None]
